FAERS Safety Report 17538934 (Version 1)
Quarter: 2020Q1

REPORT INFORMATION
  Report Type: Spontaneous
  Country: US (occurrence: US)
  Receive Date: 20200313
  Receipt Date: 20200313
  Transmission Date: 20200409
  Serious: Yes (Hospitalization)
  Sender: FDA-Public Use
  Company Number: None

PATIENT
  Age: 66 Year
  Sex: Female

DRUGS (8)
  1. BESIVANCE [Concomitant]
     Active Substance: BESIFLOXACIN
  2. CYANOCOBALAM [Concomitant]
     Active Substance: CYANOCOBALAMIN
  3. BUPROPN HCL [Concomitant]
     Active Substance: BUPROPION HYDROCHLORIDE
  4. LOTEMAX [Concomitant]
     Active Substance: LOTEPREDNOL ETABONATE
  5. PROLENSA [Concomitant]
     Active Substance: BROMFENAC SODIUM
  6. HUMIRA [Suspect]
     Active Substance: ADALIMUMAB
     Indication: CROHN^S DISEASE
     Dosage: ?          OTHER FREQUENCY:ON DAY 1;?
     Route: 058
     Dates: start: 20200219
  7. VITAMIN D [Concomitant]
     Active Substance: VITAMIN D NOS
  8. LEVOTHYROXIN [Concomitant]
     Active Substance: LEVOTHYROXINE

REACTIONS (2)
  - Cataract [None]
  - Therapy non-responder [None]

NARRATIVE: CASE EVENT DATE: 20200301
